FAERS Safety Report 15439919 (Version 1)
Quarter: 2018Q4

REPORT INFORMATION
  Report Type: Spontaneous
  Country: US (occurrence: US)
  Receive Date: 20180928
  Receipt Date: 20180928
  Transmission Date: 20190204
  Serious: Yes (Other)
  Sender: FDA-Public Use
  Company Number: US-PFIZER INC-2018388821

PATIENT
  Age: 46 Year
  Sex: Male

DRUGS (7)
  1. DOXYCYCLINE HYCLATE. [Suspect]
     Active Substance: DOXYCYCLINE HYCLATE
     Indication: ACNE
     Dosage: UNK
  2. CHLOROPHYLL (HERBAL SUPPLEMENT) [Suspect]
     Active Substance: HERBALS
     Indication: PHYTOTHERAPY
     Dosage: UNK
  3. ARGININE HCL [Suspect]
     Active Substance: ARGININE HYDROCHLORIDE
     Indication: PHYTOTHERAPY
     Dosage: UNK
  4. LYSINE [Suspect]
     Active Substance: LYSINE
     Indication: PHYTOTHERAPY
     Dosage: UNK
  5. TURMERIC MERIVA [Suspect]
     Active Substance: HERBALS\TURMERIC
     Indication: PHYTOTHERAPY
     Dosage: UNK
  6. GLYCINE. [Suspect]
     Active Substance: GLYCINE
     Indication: PHYTOTHERAPY
     Dosage: UNK
  7. ALPHA LIPOIC ACID [Suspect]
     Active Substance: .ALPHA.-LIPOIC ACID
     Indication: PHYTOTHERAPY
     Dosage: UNK

REACTIONS (1)
  - Cholestasis [Recovered/Resolved]
